FAERS Safety Report 7558603-1 (Version None)
Quarter: 2011Q2

REPORT INFORMATION
  Report Type: 
  Country: None (occurrence: None)
  Receive Date: 20110621
  Receipt Date: 20110613
  Transmission Date: 20111010
  Serious: Yes (Other)
  Sender: FDA-Public Use
  Company Number: US-BIOGENIDEC-2011BI021499

PATIENT
  Age: 31 Year
  Sex: Male

DRUGS (1)
  1. AVONEX [Suspect]
     Indication: MULTIPLE SCLEROSIS
     Route: 030
     Dates: start: 20110602, end: 20110612

REACTIONS (3)
  - MUSCLE TIGHTNESS [None]
  - INCOHERENT [None]
  - ANAPHYLACTIC SHOCK [None]
